FAERS Safety Report 21621402 (Version 1)
Quarter: 2022Q4

REPORT INFORMATION
  Report Type: Spontaneous
  Country: US (occurrence: None)
  Receive Date: 20221118
  Receipt Date: 20221118
  Transmission Date: 20230113
  Serious: No
  Sender: FDA-Public Use
  Company Number: None

PATIENT
  Age: 74 Year
  Sex: Male
  Weight: 98.61 kg

DRUGS (7)
  1. INLYTA [Suspect]
     Active Substance: AXITINIB
     Indication: Renal cancer
     Dosage: FREQUENCY : TWICE A DAY;?
     Route: 048
  2. KEPPRA [Concomitant]
  3. LEVOTHYROXINE [Concomitant]
  4. LIPITOR [Concomitant]
  5. NIFEDIPINE [Concomitant]
  6. VITAMIN B1 [Concomitant]
  7. VITAMIN B12 [Concomitant]

REACTIONS (2)
  - Stent placement [None]
  - Therapy interrupted [None]

NARRATIVE: CASE EVENT DATE: 20221114
